FAERS Safety Report 9971646 (Version 1)
Quarter: 2014Q1

REPORT INFORMATION
  Report Type: Report from Study
  Country: US (occurrence: US)
  Receive Date: 20140306
  Receipt Date: 20140306
  Transmission Date: 20141002
  Serious: No
  Sender: FDA-Public Use
  Company Number: US-ABBVIE-13P-163-1153365-00

PATIENT
  Age: 51 Year
  Sex: Female

DRUGS (8)
  1. HUMIRA [Suspect]
     Indication: CROHN^S DISEASE
     Dosage: FOUR PENS ALL ON ONE DAY
     Route: 058
     Dates: start: 20130829, end: 20130829
  2. HUMIRA [Suspect]
     Dosage: TWO PENS
     Route: 058
     Dates: start: 20130912, end: 20130912
  3. HUMIRA [Suspect]
     Route: 058
  4. LEXAPRO [Concomitant]
     Indication: DEPRESSION
     Dosage: 40 MILLIGRAMS DAILY
  5. TOPAMAX [Concomitant]
     Indication: MIGRAINE
     Dosage: AT BEDTIME
  6. ASPIRIN [Concomitant]
     Indication: PRODUCT USED FOR UNKNOWN INDICATION
     Dosage: 81 MILLIGRAMS DAILY
  7. ANTABUSE [Concomitant]
     Indication: PRODUCT USED FOR UNKNOWN INDICATION
     Dosage: 500 MILLIGRAMS DAILY
  8. SEROQUEL [Concomitant]
     Indication: INSOMNIA

REACTIONS (2)
  - Inappropriate schedule of drug administration [Unknown]
  - Nausea [Unknown]
